FAERS Safety Report 12660663 (Version 2)
Quarter: 2016Q3

REPORT INFORMATION
  Report Type: Spontaneous
  Country: US (occurrence: US)
  Receive Date: 20160817
  Receipt Date: 20160901
  Transmission Date: 20161109
  Serious: No
  Sender: FDA-Public Use
  Company Number: US-RELYPSA-RLY2016001058

PATIENT
  Sex: Female

DRUGS (12)
  1. VELTASSA [Suspect]
     Active Substance: PATIROMER
     Indication: HYPERKALAEMIA
     Route: 065
  2. RENVELA [Concomitant]
     Active Substance: SEVELAMER CARBONATE
  3. LANTUS [Concomitant]
     Active Substance: INSULIN GLARGINE
  4. SODIUM BICARBONATE. [Concomitant]
     Active Substance: SODIUM BICARBONATE
  5. LIPITOR [Concomitant]
     Active Substance: ATORVASTATIN CALCIUM
  6. NOVOLOG [Concomitant]
     Active Substance: INSULIN ASPART
  7. NEPHROCAPS                         /01801401/ [Concomitant]
  8. MIDODRINE HCL [Concomitant]
     Active Substance: MIDODRINE HYDROCHLORIDE
  9. TACROLIMUS. [Concomitant]
     Active Substance: TACROLIMUS
  10. PREDNISONE. [Concomitant]
     Active Substance: PREDNISONE
  11. COUMADIN [Concomitant]
     Active Substance: WARFARIN SODIUM
  12. FAMOTIDINE. [Concomitant]
     Active Substance: FAMOTIDINE

REACTIONS (2)
  - Sensation of foreign body [Unknown]
  - Nausea [Unknown]
